FAERS Safety Report 6510876-X (Version None)
Quarter: 2009Q4

REPORT INFORMATION
  Report Type: 
  Country: None (occurrence: None)
  Receive Date: 20091222
  Receipt Date: 20090113
  Transmission Date: 20100525
  Serious: No
  Sender: FDA-Public Use
  Company Number: US-ASTRAZENECA-2009UW01055

PATIENT
  Age: 50 Year
  Sex: Male
  Weight: 95.3 kg

DRUGS (2)
  1. CRESTOR [Suspect]
     Dosage: 5 MG, EVERY OTHER DAY
     Route: 048
  2. WELLCHOL [Concomitant]

REACTIONS (3)
  - HEPATIC ENZYME INCREASED [None]
  - MYALGIA [None]
  - PAIN IN EXTREMITY [None]
